FAERS Safety Report 18817320 (Version 2)
Quarter: 2021Q1

REPORT INFORMATION
  Report Type: Spontaneous
  Country: US (occurrence: US)
  Receive Date: 20210201
  Receipt Date: 20210212
  Transmission Date: 20210419
  Serious: Yes (Death)
  Sender: FDA-Public Use
  Company Number: US-ALKERMES INC.-ALK-2021-000493

PATIENT
  Age: 38 Year
  Sex: Male

DRUGS (1)
  1. NO COMPANY PRODUCT [Suspect]
     Active Substance: UNSPECIFIED INGREDIENT
     Indication: PRODUCT USED FOR UNKNOWN INDICATION
     Dosage: NO DRUG ADMINISTERED

REACTIONS (1)
  - Overdose [Fatal]

NARRATIVE: CASE EVENT DATE: 202011
